FAERS Safety Report 20917961 (Version 2)
Quarter: 2022Q2

REPORT INFORMATION
  Report Type: Spontaneous
  Country: US (occurrence: US)
  Receive Date: 20220606
  Receipt Date: 20220622
  Transmission Date: 20220720
  Serious: Yes (Hospitalization, Other)
  Sender: FDA-Public Use
  Company Number: US-Accord-265120

PATIENT
  Age: 45 Year
  Sex: Female
  Weight: 72.4 kg

DRUGS (3)
  1. CLOZAPINE [Suspect]
     Active Substance: CLOZAPINE
     Indication: Schizophrenia
     Dosage: 350 MG/DAY OF CLOZAPINE OVER 4 WEEKS AND CUT IMMEDIATELY TO 200 MG (57 % DECREASE) AFTER COVID-19
  2. CLONAZEPAM [Concomitant]
     Active Substance: CLONAZEPAM
     Indication: Schizophrenia
     Dosage: WAS DECREASED FROM 2 MG TO 1 MG DAILY
  3. VALPROATE [Concomitant]
     Active Substance: VALPROIC ACID
     Indication: Schizophrenia
     Dosage: 1000 MG DAILY

REACTIONS (5)
  - Sedation [Recovered/Resolved]
  - Salivary hypersecretion [Recovered/Resolved]
  - Gait disturbance [Recovered/Resolved]
  - Antipsychotic drug level increased [Recovered/Resolved]
  - Lethargy [Recovered/Resolved]
